FAERS Safety Report 7762078-7 (Version None)
Quarter: 2011Q3

REPORT INFORMATION
  Report Type: 
  Country: None (occurrence: None)
  Receive Date: 20110920
  Receipt Date: 20110920
  Transmission Date: 20111222
  Serious: No
  Sender: FDA-Public Use
  Company Number: None

PATIENT
  Age: 51 Year
  Sex: Female
  Weight: 68.038 kg

DRUGS (1)
  1. MYCOPHENOLATE MOFETIL [Suspect]
     Indication: JUVENILE ARTHRITIS
     Dosage: 250MG
     Route: 048
     Dates: start: 20110823, end: 20110914

REACTIONS (1)
  - DEAFNESS UNILATERAL [None]
